FAERS Safety Report 18545321 (Version 1)
Quarter: 2020Q4

REPORT INFORMATION
  Report Type: Spontaneous
  Country: US (occurrence: US)
  Receive Date: 20201125
  Receipt Date: 20201125
  Transmission Date: 20210114
  Serious: Yes (Death)
  Sender: FDA-Public Use
  Company Number: None

PATIENT
  Sex: Male
  Weight: 80.1 kg

DRUGS (15)
  1. ACYCLOVIR 400MG ORAL [Concomitant]
  2. VITAMIN B12 1000MCG ORAL [Concomitant]
  3. REVLIMID 25MG ORAL [Concomitant]
  4. VITAMIN D 1000 UNIT ORAL [Concomitant]
  5. OMEPRAZOLE 40MG ORAL [Concomitant]
  6. MORPHINE SULFATE 30MG ORAL [Concomitant]
  7. MORPHINE SULFATE ER 100MG ORAL [Concomitant]
  8. NINLARO [Suspect]
     Active Substance: IXAZOMIB CITRATE
     Indication: PLASMA CELL MYELOMA
     Route: 048
  9. ASPIRIN 81MG ORAL [Concomitant]
  10. ATORVASTATIN 40MG ORAL [Concomitant]
  11. BACLOFEN 10MG ORAL [Concomitant]
  12. LISINOPRIL 100MG ORAL [Concomitant]
  13. ONDANSETRON 4MG ORAL [Concomitant]
  14. ALLOPURINOL 100MG ORAL [Concomitant]
  15. DEXAMETHASONE 4MG ORAL [Concomitant]

REACTIONS (1)
  - Death [None]
